FAERS Safety Report 10280782 (Version 2)
Quarter: 2014Q3

REPORT INFORMATION
  Report Type: Spontaneous
  Country: CA (occurrence: CA)
  Receive Date: 20140707
  Receipt Date: 20140707
  Transmission Date: 20150326
  Serious: Yes (Other)
  Sender: FDA-Public Use
  Company Number: CA-BAXTER-2014BAX031718

PATIENT
  Age: 73 Year
  Sex: Female

DRUGS (2)
  1. DIANEAL W/ DEXTROSE 1.5% [Suspect]
     Active Substance: CALCIUM CHLORIDE\DEXTROSE\MAGNESIUM CHLORIDE\SODIUM CHLORIDE\SODIUM LACTATE
     Indication: RENAL IMPAIRMENT
     Dosage: 2 BAGS OF 5 LITERS
     Route: 033
     Dates: start: 2008
  2. DIANEAL W/ DEXTROSE 2.5% [Suspect]
     Active Substance: CALCIUM CHLORIDE\DEXTROSE\MAGNESIUM CHLORIDE\SODIUM CHLORIDE\SODIUM LACTATE
     Indication: RENAL IMPAIRMENT
     Route: 033
     Dates: start: 2008

REACTIONS (1)
  - Cataract [Unknown]
